FAERS Safety Report 21908930 (Version 1)
Quarter: 2023Q1

REPORT INFORMATION
  Report Type: Spontaneous
  Country: US (occurrence: None)
  Receive Date: 20230124
  Receipt Date: 20230124
  Transmission Date: 20230418
  Serious: No
  Sender: FDA-Public Use
  Company Number: None

PATIENT
  Age: 69 Year
  Sex: Male
  Weight: 99.9 kg

DRUGS (13)
  1. MIDODRINE HYDROCHLORIDE [Suspect]
     Active Substance: MIDODRINE HYDROCHLORIDE
     Indication: Hypotension
  2. ATORVASTATIN [Concomitant]
     Active Substance: ATORVASTATIN
  3. DULOXETINE [Concomitant]
     Active Substance: DULOXETINE
  4. FENOFIBRATE [Concomitant]
     Active Substance: FENOFIBRATE
  5. FOLIC ACID [Concomitant]
     Active Substance: FOLIC ACID
  6. PANTOPRAZOLE [Concomitant]
     Active Substance: PANTOPRAZOLE
  7. SEVELAMER CARBONATE [Concomitant]
     Active Substance: SEVELAMER CARBONATE
  8. VELPHORO [Concomitant]
     Active Substance: SUCROFERRIC OXYHYDROXIDE
  9. TRADJENTA [Concomitant]
     Active Substance: LINAGLIPTIN
  10. WARFARIN [Concomitant]
     Active Substance: WARFARIN
  11. Muti-vitamin [Concomitant]
  12. MAGNESIUM [Concomitant]
     Active Substance: MAGNESIUM
  13. linguine [Concomitant]

REACTIONS (1)
  - Hiccups [None]

NARRATIVE: CASE EVENT DATE: 20221224
